FAERS Safety Report 10467901 (Version 1)
Quarter: 2014Q3

REPORT INFORMATION
  Report Type: Spontaneous
  Country: FR (occurrence: FR)
  Receive Date: 20140922
  Receipt Date: 20140922
  Transmission Date: 20150326
  Serious: Yes (Hospitalization)
  Sender: FDA-Public Use
  Company Number: FR-PFIZER INC-2014256610

PATIENT
  Age: 32 Month
  Sex: Male
  Weight: 13 kg

DRUGS (3)
  1. ZONEGRAN [Concomitant]
     Active Substance: ZONISAMIDE
     Dosage: 35 MG, 2X/DAY
  2. MICROPAKINE LP [Concomitant]
     Dosage: 200 MG, 2X/DAY
  3. EPANUTIN [Suspect]
     Active Substance: PHENYTOIN SODIUM
     Indication: PARTIAL SEIZURES
     Dosage: 60 MG, 3X/DAY
     Route: 048
     Dates: start: 20140516

REACTIONS (5)
  - Vomiting [Recovered/Resolved]
  - Nystagmus [Recovered/Resolved]
  - Dyskinesia [Recovered/Resolved]
  - Overdose [Recovered/Resolved]
  - Loss of control of legs [Recovered/Resolved]

NARRATIVE: CASE EVENT DATE: 20140521
